FAERS Safety Report 5798892-7 (Version None)
Quarter: 2008Q3

REPORT INFORMATION
  Report Type: 
  Country: None (occurrence: None)
  Receive Date: 20080702
  Receipt Date: 20080623
  Transmission Date: 20090109
  Serious: Yes (Hospitalization)
  Sender: FDA-Public Use
  Company Number: US-MERCK-0705USA01280

PATIENT
  Age: 74 Year
  Sex: Female
  Weight: 56 kg

DRUGS (2)
  1. FOSAMAX [Suspect]
     Indication: OSTEOPOROSIS
     Route: 048
     Dates: start: 19990101, end: 20060625
  2. ARMOUR THYROID TABLETS [Concomitant]
     Route: 065
     Dates: start: 19900101

REACTIONS (6)
  - DENTAL CARIES [None]
  - GINGIVAL SWELLING [None]
  - ORAL INFECTION [None]
  - PERIODONTAL DISEASE [None]
  - TOOTH LOSS [None]
  - UTERINE DILATION AND CURETTAGE [None]
